FAERS Safety Report 16420147 (Version 1)
Quarter: 2019Q2

REPORT INFORMATION
  Report Type: Spontaneous
  Country: US (occurrence: US)
  Receive Date: 20190612
  Receipt Date: 20190612
  Transmission Date: 20190711
  Serious: No
  Sender: FDA-Public Use
  Company Number: US-ENDO PHARMACEUTICALS INC-2018-040356

PATIENT
  Age: 9 Year
  Sex: Female
  Weight: 26.26 kg

DRUGS (1)
  1. SUPPRELIN LA [Suspect]
     Active Substance: HISTRELIN ACETATE
     Indication: PRECOCIOUS PUBERTY
     Dosage: 50 MG, UNKNOWN
     Route: 058
     Dates: start: 20180621, end: 20180724

REACTIONS (3)
  - Expulsion of medication [Unknown]
  - Implant site erythema [Unknown]
  - Implant site infection [Unknown]

NARRATIVE: CASE EVENT DATE: 201807
